FAERS Safety Report 14609236 (Version 1)
Quarter: 2018Q1

REPORT INFORMATION
  Report Type: Spontaneous
  Country: FR (occurrence: FR)
  Receive Date: 20180307
  Receipt Date: 20180307
  Transmission Date: 20180509
  Serious: Yes (Other)
  Sender: FDA-Public Use
  Company Number: FR-LPDUSPRD-20180269

PATIENT
  Age: 23 Year
  Sex: Female
  Weight: 65 kg

DRUGS (2)
  1. FERINJECT [Suspect]
     Active Substance: FERRIC CARBOXYMALTOSE
     Dosage: 1 GM
     Route: 042
     Dates: start: 20170606, end: 20170606
  2. PENTASA [Concomitant]
     Active Substance: MESALAMINE
     Dosage: 2 GM, 1 IN 1 D
     Route: 048
     Dates: start: 201605

REACTIONS (3)
  - Asthenia [Unknown]
  - Hyperthermia [Unknown]
  - Myalgia [Unknown]

NARRATIVE: CASE EVENT DATE: 20170606
